FAERS Safety Report 9388026 (Version 1)
Quarter: 2013Q3

REPORT INFORMATION
  Report Type: Spontaneous
  Country: DE (occurrence: None)
  Receive Date: 20130703
  Receipt Date: 20130703
  Transmission Date: 20140515
  Serious: Yes (Death)
  Sender: FDA-Public Use
  Company Number: KAD201306-000765

PATIENT
  Age: 10 Year
  Sex: Female

DRUGS (4)
  1. RIBAVIRIN (RIBAVIRIN) [Suspect]
     Indication: METAPNEUMOVIRUS INFECTION
     Route: 048
  2. POLYVALENT CROTALIDAE ANTIVENIN (EQUINE) [Suspect]
     Indication: METAPNEUMOVIRUS INFECTION
  3. PREDNISOLONE [Suspect]
     Indication: IMMUNOSUPPRESSANT DRUG THERAPY
     Dosage: 0.2 MG/KG/DAY
  4. RIBAVIRIN [Suspect]
     Indication: METAPNEUMOVIRUS INFECTION
     Route: 042

REACTIONS (2)
  - Respiratory failure [None]
  - Off label use [None]
